FAERS Safety Report 21899067 (Version 3)
Quarter: 2024Q4

REPORT INFORMATION
  Report Type: Spontaneous
  Country: RO (occurrence: RO)
  Receive Date: 20230123
  Receipt Date: 20241002
  Transmission Date: 20250115
  Serious: Yes (Hospitalization, Other)
  Sender: MYLAN
  Company Number: RO-SUN PHARMACEUTICAL INDUSTRIES LTD-2022RR-368387

PATIENT
  Age: 14 Month
  Sex: Female

DRUGS (7)
  1. VANCOMYCIN [Suspect]
     Active Substance: VANCOMYCIN
     Indication: Rash vesicular
     Dosage: 40 MILLIGRAM/KILOGRAM, QD, DAILY
     Route: 065
  2. VANCOMYCIN [Suspect]
     Active Substance: VANCOMYCIN
     Indication: Splenic abscess
  3. CLINDAMYCIN [Suspect]
     Active Substance: CLINDAMYCIN
     Indication: Splenic abscess
     Dosage: 30 MILLIGRAM/KILOGRAM, QD, DAILY
     Route: 065
  4. FLUCONAZOLE [Suspect]
     Active Substance: FLUCONAZOLE
     Indication: Rash vesicular
     Dosage: 6 MILLIGRAM/KILOGRAM, QD, DAILY
     Route: 065
  5. FLUCONAZOLE [Suspect]
     Active Substance: FLUCONAZOLE
     Indication: Splenic abscess
  6. MEROPENEM [Suspect]
     Active Substance: MEROPENEM
     Indication: Splenic abscess
     Dosage: 60 MILLIGRAM/KILOGRAM, QD, DAILY
     Route: 065
  7. HYDROCORTISONE [Concomitant]
     Active Substance: HYDROCORTISONE
     Dosage: UNK
     Route: 065

REACTIONS (6)
  - Superficial vein thrombosis [Unknown]
  - Dysbiosis [Unknown]
  - Drug ineffective [Unknown]
  - Diarrhoea [Unknown]
  - Rash [Unknown]
  - Off label use [Unknown]
